APPROVED DRUG PRODUCT: AMBRISENTAN
Active Ingredient: AMBRISENTAN
Strength: 5MG
Dosage Form/Route: TABLET;ORAL
Application: A208441 | Product #001 | TE Code: AB
Applicant: MYLAN PHARMACEUTICALS INC
Approved: Mar 28, 2019 | RLD: No | RS: No | Type: RX